FAERS Safety Report 6986621-0 (Version None)
Quarter: 2010Q3

REPORT INFORMATION
  Report Type: 
  Country: None (occurrence: None)
  Receive Date: 20100827
  Receipt Date: 20100324
  Transmission Date: 20110219
  Serious: Yes (Other)
  Sender: FDA-Public Use
  Company Number: AMAG201000180

PATIENT
  Age: 71 Year
  Sex: Female
  Weight: 74.8 kg

DRUGS (10)
  1. FERAHEME [Suspect]
     Indication: IRON DEFICIENCY ANAEMIA
     Dosage: 510 MG, SINGLE, INTRAVENOUS
     Route: 042
     Dates: start: 20100323, end: 20100323
  2. LASIX [Concomitant]
  3. ASPIRIN [Concomitant]
  4. ZEMPLAR [Concomitant]
  5. RENVELA [Concomitant]
  6. ADALAT [Concomitant]
  7. PRAVACHOL [Concomitant]
  8. VITAMIN D [Concomitant]
  9. TOPROL-XL [Concomitant]
  10. ARANESP (DARBEPOETIN ALFA0 [Concomitant]

REACTIONS (3)
  - FLUSHING [None]
  - HYPOTENSION [None]
  - PARAESTHESIA [None]
